FAERS Safety Report 15680274 (Version 5)
Quarter: 2020Q3

REPORT INFORMATION
  Report Type: Spontaneous
  Country: US (occurrence: US)
  Receive Date: 20181203
  Receipt Date: 20200827
  Transmission Date: 20201102
  Serious: Yes (Other)
  Sender: FDA-Public Use
  Company Number: US-PFIZER INC-2018488371

PATIENT
  Age: 79 Year
  Sex: Female
  Weight: 74 kg

DRUGS (8)
  1. POTASSIUM [Concomitant]
     Active Substance: POTASSIUM
     Dosage: UNK
  2. TOVIAZ [Suspect]
     Active Substance: FESOTERODINE FUMARATE
     Indication: INCONTINENCE
     Dosage: 8 MG, DAILY (AT BREAKFAST)
     Route: 048
     Dates: start: 2017
  3. SELEGILINE [Suspect]
     Active Substance: SELEGILINE
     Indication: PARKINSON^S DISEASE
     Dosage: 5 MG, 2X/DAY (ONE CAPSULE IN THE MORNING AND ONE AT NIGHT)
     Route: 048
  4. CARVEDILOL. [Concomitant]
     Active Substance: CARVEDILOL
     Indication: CARDIAC DISORDER
     Dosage: 6.5 MG, 2X/DAY (ONCE IN THE MORNING, ONCE AT NIGHT)
     Route: 048
     Dates: start: 2013
  5. GLUCOSAMINE AND CHONDROITIN [Concomitant]
     Active Substance: CHONDROITIN SULFATE (BOVINE)\GLUCOSAMINE HYDROCHLORIDE
     Indication: BONE DISORDER
     Dosage: UNK, ONCE A DAY, (GLUCOSAMINE, 2500 AND CHONDROITIN 1600, ONCE A DAY)
  6. CARDIZEM [DILTIAZEM HYDROCHLORIDE] [Concomitant]
     Active Substance: DILTIAZEM HYDROCHLORIDE
     Indication: CARDIAC DISORDER
     Dosage: UNK, TWICE A DAY
  7. LASIX [Concomitant]
     Active Substance: FUROSEMIDE
     Dosage: UNK, AS NEEDED
  8. TOVIAZ [Suspect]
     Active Substance: FESOTERODINE FUMARATE
     Indication: BLADDER DISCOMFORT
     Dosage: 8 MG, DAILY (AT BREAKFAST)
     Route: 048
     Dates: start: 2016

REACTIONS (5)
  - Dementia [Recovering/Resolving]
  - Parkinson^s disease [Not Recovered/Not Resolved]
  - Macular degeneration [Unknown]
  - Fall [Recovered/Resolved]
  - Memory impairment [Recovering/Resolving]

NARRATIVE: CASE EVENT DATE: 201709
